FAERS Safety Report 25242178 (Version 2)
Quarter: 2025Q2

REPORT INFORMATION
  Report Type: Spontaneous
  Country: PT (occurrence: PT)
  Receive Date: 20250426
  Receipt Date: 20250513
  Transmission Date: 20250716
  Serious: Yes (Other)
  Sender: AUROBINDO
  Company Number: PT-MLMSERVICE-20250407-PI470058-00097-1

PATIENT
  Age: 54 Year
  Sex: Male

DRUGS (6)
  1. CYCLOSPORINE [Suspect]
     Active Substance: CYCLOSPORINE
     Indication: Retinal cyst
     Route: 065
  2. CYCLOSPORINE [Suspect]
     Active Substance: CYCLOSPORINE
     Indication: Birdshot chorioretinopathy
  3. PREDNISOLONE [Suspect]
     Active Substance: PREDNISOLONE
     Indication: Birdshot chorioretinopathy
     Route: 048
  4. METHOTREXATE [Suspect]
     Active Substance: METHOTREXATE
     Indication: Product used for unknown indication
     Route: 065
  5. OZURDEX [Suspect]
     Active Substance: DEXAMETHASONE
     Indication: Birdshot chorioretinopathy
     Route: 061
  6. ILUVIEN [Suspect]
     Active Substance: FLUOCINOLONE ACETONIDE
     Indication: Birdshot chorioretinopathy

REACTIONS (13)
  - Macular oedema [Recovering/Resolving]
  - Ocular hypertension [Recovering/Resolving]
  - Retinal cyst [Recovering/Resolving]
  - Skin reaction [Recovering/Resolving]
  - Lymphocytosis [Recovering/Resolving]
  - Visual acuity reduced [Recovering/Resolving]
  - Inflammation [Recovering/Resolving]
  - Disease recurrence [Recovering/Resolving]
  - Epiretinal membrane [Recovering/Resolving]
  - Investigation noncompliance [Unknown]
  - Therapy change [Unknown]
  - Off label use [Unknown]
  - Drug ineffective [Unknown]
